FAERS Safety Report 16993860 (Version 1)
Quarter: 2019Q4

REPORT INFORMATION
  Report Type: Spontaneous
  Country: US (occurrence: US)
  Receive Date: 20191105
  Receipt Date: 20191105
  Transmission Date: 20200122
  Serious: No
  Sender: FDA-Public Use
  Company Number: US-BAYER-2019-193129

PATIENT
  Age: 73 Year
  Sex: Female

DRUGS (1)
  1. CLIMARA [Suspect]
     Active Substance: ESTRADIOL
     Indication: MENOPAUSE
     Dosage: UNK
     Route: 062
     Dates: start: 1996

REACTIONS (3)
  - Product packaging quantity issue [None]
  - Product packaging issue [None]
  - Product intolerance [None]

NARRATIVE: CASE EVENT DATE: 20191023
